FAERS Safety Report 6260559-9 (Version None)
Quarter: 2009Q3

REPORT INFORMATION
  Report Type: 
  Country: None (occurrence: None)
  Receive Date: 20090708
  Receipt Date: 20090629
  Transmission Date: 20100115
  Serious: Yes (Other)
  Sender: FDA-Public Use
  Company Number: PHEH2009US07035

PATIENT
  Age: 55 Year
  Sex: Male

DRUGS (1)
  1. TASIGNA [Suspect]
     Indication: CHRONIC MYELOID LEUKAEMIA
     Dosage: 200 MG, BID
     Dates: start: 20090601, end: 20090601

REACTIONS (3)
  - EXTRAOCULAR MUSCLE DISORDER [None]
  - IMPAIRED DRIVING ABILITY [None]
  - PAPILLOEDEMA [None]
